FAERS Safety Report 22400672 (Version 1)
Quarter: 2023Q2

REPORT INFORMATION
  Report Type: Report from Study
  Country: US (occurrence: US)
  Receive Date: 20230602
  Receipt Date: 20230602
  Transmission Date: 20230722
  Serious: Yes (Other)
  Sender: FDA-Public Use
  Company Number: US-SUNOVION-2023SUN000719

PATIENT
  Age: 44 Year
  Sex: Female

DRUGS (1)
  1. LATUDA [Suspect]
     Active Substance: LURASIDONE HYDROCHLORIDE
     Indication: Schizophrenia
     Dosage: UNK
     Route: 048

REACTIONS (7)
  - Akinesia [Unknown]
  - Emotional poverty [Unknown]
  - Movement disorder [Unknown]
  - Blood cholesterol increased [Unknown]
  - Weight increased [Unknown]
  - Dyskinesia [Unknown]
  - Somnolence [Unknown]
